FAERS Safety Report 10152580 (Version 1)
Quarter: 2014Q2

REPORT INFORMATION
  Report Type: Spontaneous
  Country: US (occurrence: None)
  Receive Date: 20140502
  Receipt Date: 20140502
  Transmission Date: 20141212
  Serious: No
  Sender: FDA-Public Use
  Company Number: None

PATIENT
  Age: 76 Year
  Sex: 0

DRUGS (14)
  1. EVEROLIMUS [Suspect]
     Indication: PROSTATE CANCER
     Dosage: 5 MG EVERY OTHER DAY PO
     Route: 048
     Dates: start: 20140224
  2. BICALUTAMIDE [Suspect]
     Indication: PROSTATE CANCER
     Dosage: 50 MG ONCE DAILY
     Dates: start: 20140224
  3. MEGASTROL [Concomitant]
  4. ANTACID/NYSTATIN/LIDOCAINE MOUTHWASH [Concomitant]
  5. PRAVASTATIN [Concomitant]
  6. ZOLPIDEM [Concomitant]
  7. MORPHINE (MS IR) [Concomitant]
  8. AMLODIPINE [Concomitant]
  9. BRIMONIDINE OPHTH SOLN (ALPHAGAN) [Concomitant]
  10. CARBIDOPA [Concomitant]
  11. NEXIUM [Concomitant]
  12. NITROQUICK SL [Concomitant]
  13. TRAVOPROST [Concomitant]
  14. TYLENOL [Concomitant]

REACTIONS (2)
  - Pulmonary embolism [None]
  - Peripheral artery thrombosis [None]
